FAERS Safety Report 4681898-9 (Version None)
Quarter: 2005Q2

REPORT INFORMATION
  Report Type: 
  Country: None (occurrence: None)
  Receive Date: 20050602
  Receipt Date: 20050523
  Transmission Date: 20051028
  Serious: Yes (Other)
  Sender: FDA-Public Use
  Company Number: 2005079570

PATIENT
  Age: 46 Year
  Sex: Female

DRUGS (1)
  1. DEPO-PROVERA [Suspect]
     Indication: ILL-DEFINED DISORDER

REACTIONS (9)
  - BODY TEMPERATURE INCREASED [None]
  - CHEST PAIN [None]
  - DIFFICULTY IN WALKING [None]
  - HEART RATE INCREASED [None]
  - HEART RATE IRREGULAR [None]
  - INFERTILITY [None]
  - NAUSEA [None]
  - RESPIRATORY ARREST [None]
  - TREMOR [None]
